FAERS Safety Report 6276148-6 (Version None)
Quarter: 2009Q3

REPORT INFORMATION
  Report Type: 
  Country: None (occurrence: None)
  Receive Date: 20090717
  Receipt Date: 20090717
  Transmission Date: 20100115
  Serious: Yes (Life-Threatening, Disabling, Congenital Anomaly, Other)
  Sender: FDA-Public Use
  Company Number: None

PATIENT

DRUGS (2)
  1. VIT. D2 BARR (ERGO CAL) 50,000 MG [Suspect]
     Indication: VITAMIN D DECREASED
     Dosage: 50 MU 1 X WEEK ORAL
     Route: 048
     Dates: start: 20090608, end: 20090715
  2. ZYPREXA [Suspect]
     Indication: AUTISM
     Dosage: 7.5 MG 1 X PER PM ORAL
     Route: 048

REACTIONS (3)
  - ANEURYSM [None]
  - CEREBROVASCULAR ACCIDENT [None]
  - THROMBOSIS [None]
